FAERS Safety Report 9075906 (Version 1)
Quarter: 2013Q1

REPORT INFORMATION
  Report Type: Report from Study
  Country: US (occurrence: US)
  Receive Date: 20130129
  Receipt Date: 20130129
  Transmission Date: 20140127
  Serious: Yes (Other)
  Sender: FDA-Public Use
  Company Number: US-ABBOTT-12P-163-0902690-00

PATIENT
  Age: 69 Year
  Sex: Female
  Weight: 70 kg

DRUGS (11)
  1. HUMIRA 40 MG/0.8 ML PEN [Suspect]
     Indication: CROHN^S DISEASE
     Dates: start: 20111209
  2. EYE DROPS [Suspect]
     Indication: PRODUCT USED FOR UNKNOWN INDICATION
  3. PERCOCET [Concomitant]
     Indication: PAIN
     Dosage: 5/325 MILLIGRAMS Q6H
  4. AMBIEN [Concomitant]
     Indication: INSOMNIA
     Dosage: 10 MG DAILY
  5. CHILDREN^S CHEWABLE VITAMIN [Concomitant]
     Indication: VITAMIN SUPPLEMENTATION
  6. CALCIUM [Concomitant]
     Indication: MINERAL SUPPLEMENTATION
  7. VIVELLE DOT ESTROGEN PATCH [Concomitant]
     Indication: PRODUCT USED FOR UNKNOWN INDICATION
     Dosage: 2 PATCHES PER WEEK
  8. VITAMIN B12 [Concomitant]
     Indication: PRODUCT USED FOR UNKNOWN INDICATION
  9. PREDNISOLONE [Concomitant]
     Indication: PRODUCT USED FOR UNKNOWN INDICATION
     Dosage: LEFT EYE 3 TIMES PER DAY
  10. NEVANAC [Concomitant]
     Indication: PRODUCT USED FOR UNKNOWN INDICATION
     Dosage: LEFT EYE 3 TIMES PER DAY
  11. OPTIVE [Concomitant]
     Indication: PRODUCT USED FOR UNKNOWN INDICATION

REACTIONS (4)
  - Intraocular lens implant [Not Recovered/Not Resolved]
  - Impaired healing [Not Recovered/Not Resolved]
  - Injection site pain [Not Recovered/Not Resolved]
  - Drug hypersensitivity [Unknown]
